FAERS Safety Report 8161014-1 (Version None)
Quarter: 2012Q1

REPORT INFORMATION
  Report Type: 
  Country: None (occurrence: None)
  Receive Date: 20120224
  Receipt Date: 20120213
  Transmission Date: 20120608
  Serious: No
  Sender: FDA-Public Use
  Company Number: DK-GE HEALTHCARE MEDICAL DIAGNOSTICS-OSCN-NO-1202S-0015

PATIENT
  Sex: Male

DRUGS (2)
  1. OMNISCAN [Suspect]
     Indication: NEPHROPATHY
     Route: 065
     Dates: start: 20030113, end: 20050629
  2. OMNISCAN [Suspect]
     Route: 065
     Dates: start: 20050629, end: 20050629

REACTIONS (12)
  - BACK PAIN [None]
  - NEPHROGENIC SYSTEMIC FIBROSIS [None]
  - MUSCULOSKELETAL PAIN [None]
  - GAIT DISTURBANCE [None]
  - ACTIVITIES OF DAILY LIVING IMPAIRED [None]
  - MOBILITY DECREASED [None]
  - ARTHRALGIA [None]
  - POOR QUALITY SLEEP [None]
  - MUSCULAR WEAKNESS [None]
  - PAIN IN EXTREMITY [None]
  - MOTOR DYSFUNCTION [None]
  - DECREASED APPETITE [None]
